FAERS Safety Report 22247032 (Version 1)
Quarter: 2023Q2

REPORT INFORMATION
  Report Type: Spontaneous
  Country: US (occurrence: US)
  Receive Date: 20230424
  Receipt Date: 20230424
  Transmission Date: 20230721
  Serious: No
  Sender: FDA-Public Use
  Company Number: US-Prasco Laboratories-PRAS20230107

PATIENT
  Age: 85 Year
  Sex: Female

DRUGS (1)
  1. ESTRADIOL [Suspect]
     Active Substance: ESTRADIOL
     Indication: Prophylaxis urinary tract infection
     Dosage: 1 G
     Route: 067
     Dates: end: 202303

REACTIONS (2)
  - Vaginal haemorrhage [Recovered/Resolved]
  - Off label use [None]

NARRATIVE: CASE EVENT DATE: 20230330
